FAERS Safety Report 7231304-5 (Version None)
Quarter: 2011Q1

REPORT INFORMATION
  Report Type: 
  Country: None (occurrence: None)
  Receive Date: 20110107
  Receipt Date: 20101226
  Transmission Date: 20110831
  Serious: Yes (Hospitalization)
  Sender: FDA-Public Use
  Company Number: AXC-2010-000371

PATIENT
  Age: 44 Year
  Sex: Female

DRUGS (2)
  1. MESALAMINE [Suspect]
     Indication: COLITIS ULCERATIVE
  2. AZATHIOPRINE [Suspect]
     Indication: COLITIS ULCERATIVE

REACTIONS (8)
  - TRACHEOBRONCHITIS [None]
  - PULMONARY FUNCTION TEST ABNORMAL [None]
  - UPPER RESPIRATORY TRACT INFECTION [None]
  - TRACHEAL DISORDER [None]
  - BIOPSY LUNG ABNORMAL [None]
  - FATIGUE [None]
  - CHEST PAIN [None]
  - PROLONGED EXPIRATION [None]
